FAERS Safety Report 7326345-3 (Version None)
Quarter: 2011Q1

REPORT INFORMATION
  Report Type: 
  Country: None (occurrence: None)
  Receive Date: 20110302
  Receipt Date: 20110221
  Transmission Date: 20110831
  Serious: Yes (Hospitalization)
  Sender: FDA-Public Use
  Company Number: B0702886A

PATIENT
  Age: 44 Year
  Sex: Female

DRUGS (3)
  1. VENLAFAXINE [Suspect]
     Indication: PRODUCT USED FOR UNKNOWN INDICATION
     Dosage: 4.5G PER DAY
     Route: 065
  2. LAMOTRIGINE [Suspect]
     Indication: PRODUCT USED FOR UNKNOWN INDICATION
     Dosage: 20G PER DAY
     Route: 065
  3. DIAZEPAM [Suspect]
     Indication: PRODUCT USED FOR UNKNOWN INDICATION
     Dosage: 200MG PER DAY
     Route: 065

REACTIONS (6)
  - HAEMODIALYSIS [None]
  - SEROTONIN SYNDROME [None]
  - MUSCLE RIGIDITY [None]
  - TOXICITY TO VARIOUS AGENTS [None]
  - HYPERREFLEXIA [None]
  - INTENTIONAL DRUG MISUSE [None]
